FAERS Safety Report 6273133-5 (Version None)
Quarter: 2009Q3

REPORT INFORMATION
  Report Type: 
  Country: None (occurrence: None)
  Receive Date: 20090715
  Receipt Date: 20090715
  Transmission Date: 20100115
  Serious: No
  Sender: FDA-Public Use
  Company Number: None

PATIENT
  Age: 48 Year
  Sex: Female
  Weight: 58.9676 kg

DRUGS (1)
  1. ZANTAC [Suspect]
     Indication: ANTIEMETIC SUPPORTIVE CARE
     Dosage: 50 MG TIME ONE DOSE IV
     Route: 042
     Dates: start: 20090709, end: 20090709

REACTIONS (3)
  - FLUSHING [None]
  - INJECTION SITE ERYTHEMA [None]
  - INJECTION SITE PRURITUS [None]
